FAERS Safety Report 17949727 (Version 8)
Quarter: 2021Q3

REPORT INFORMATION
  Report Type: Spontaneous
  Country: CA (occurrence: CA)
  Receive Date: 20200626
  Receipt Date: 20210923
  Transmission Date: 20211014
  Serious: Yes (Death, Other)
  Sender: FDA-Public Use
  Company Number: CA-ACCORD-186554

PATIENT
  Age: 54 Year
  Sex: Male

DRUGS (17)
  1. BUPROPION/BUPROPION HYDROCHLORIDE [Suspect]
     Active Substance: BUPROPION HYDROCHLORIDE
     Indication: BIPOLAR DISORDER
     Route: 065
  2. SUSTIVA [Interacting]
     Active Substance: EFAVIRENZ
     Indication: HIV INFECTION
     Dosage: 2 EVERY 1 DAYS
     Route: 048
  3. ATAZANAVIR. [Interacting]
     Active Substance: ATAZANAVIR
     Indication: HIV INFECTION
     Route: 005
  4. KALETRA [Interacting]
     Active Substance: LOPINAVIR\RITONAVIR
     Indication: HIV INFECTION
     Route: 048
  5. ENFUVIRTIDE. [Concomitant]
     Active Substance: ENFUVIRTIDE
     Indication: HIV INFECTION
     Route: 058
  6. CLONAZEPAM. [Interacting]
     Active Substance: CLONAZEPAM
     Indication: BIPOLAR DISORDER
     Route: 048
  7. RIVOTRIL [Interacting]
     Active Substance: CLONAZEPAM
     Indication: BIPOLAR DISORDER
     Route: 048
  8. T?20 [Concomitant]
     Active Substance: ENFUVIRTIDE
     Route: 065
  9. SERTRALINE [Interacting]
     Active Substance: SERTRALINE HYDROCHLORIDE
     Indication: BIPOLAR DISORDER
     Route: 048
  10. ZOPICLONE [Interacting]
     Active Substance: ZOPICLONE
     Indication: BIPOLAR DISORDER
     Route: 048
  11. ISENTRESS [Interacting]
     Active Substance: RALTEGRAVIR POTASSIUM
     Indication: HIV INFECTION
     Dosage: 2 EVERY 1 DAYS
     Route: 048
  12. LOPINAVIR/RITONAVIR [Interacting]
     Active Substance: LOPINAVIR\RITONAVIR
     Indication: HIV INFECTION
     Route: 048
  13. EFAVIRENZ. [Interacting]
     Active Substance: EFAVIRENZ
     Indication: HIV INFECTION
     Route: 048
  14. QUETIAPINE. [Interacting]
     Active Substance: QUETIAPINE
     Indication: BIPOLAR DISORDER
     Route: 048
  15. BUPROPION. [Concomitant]
     Active Substance: BUPROPION
     Indication: PRODUCT USED FOR UNKNOWN INDICATION
     Route: 048
  16. VALPROIC ACID. [Interacting]
     Active Substance: VALPROIC ACID
     Indication: BIPOLAR DISORDER
     Route: 048
  17. LAMIVUDINE. [Interacting]
     Active Substance: LAMIVUDINE
     Indication: HIV INFECTION
     Route: 005

REACTIONS (3)
  - Loss of personal independence in daily activities [Fatal]
  - Drug interaction [Fatal]
  - Depression [Fatal]
